FAERS Safety Report 13181260 (Version 1)
Quarter: 2017Q1

REPORT INFORMATION
  Report Type: Spontaneous
  Country: US (occurrence: US)
  Receive Date: 20170202
  Receipt Date: 20170202
  Transmission Date: 20170428
  Serious: No
  Sender: FDA-Public Use
  Company Number: US-SMITH AND NEPHEW, INC-2016SMT01082

PATIENT
  Age: 58 Year
  Sex: Female
  Weight: 131.97 kg

DRUGS (14)
  1. UNSPECIFIED OTHER MEDICATIONS [Concomitant]
     Active Substance: UNSPECIFIED INGREDIENT
  2. FISH OIL [Concomitant]
     Active Substance: FISH OIL
  3. ACETAMINOPHEN AND CODEINE [Concomitant]
     Active Substance: ACETAMINOPHEN\CODEINE PHOSPHATE
  4. BUMEX [Concomitant]
     Active Substance: BUMETANIDE
  5. GARLIC. [Concomitant]
     Active Substance: GARLIC
  6. CILOSTAZOL. [Concomitant]
     Active Substance: CILOSTAZOL
  7. GABAPENTIN. [Concomitant]
     Active Substance: GABAPENTIN
  8. HUMALOG [Concomitant]
     Active Substance: INSULIN LISPRO
  9. CINNAMON. [Concomitant]
     Active Substance: CINNAMON
  10. LANTUS [Concomitant]
     Active Substance: INSULIN GLARGINE
  11. REGRANEX [Suspect]
     Active Substance: BECAPLERMIN
     Indication: DIABETIC FOOT
     Dosage: UNK, 1X/DAY
     Route: 061
     Dates: start: 201611, end: 2016
  12. POTASSIUM [Concomitant]
     Active Substance: POTASSIUM
  13. ATORVASTATIN [Concomitant]
     Active Substance: ATORVASTATIN
  14. IRON [Concomitant]
     Active Substance: IRON

REACTIONS (5)
  - Wound complication [Not Recovered/Not Resolved]
  - Wound haemorrhage [Not Recovered/Not Resolved]
  - Wound secretion [Not Recovered/Not Resolved]
  - Application site pain [Not Recovered/Not Resolved]
  - Incorrect drug administration duration [Recovered/Resolved]

NARRATIVE: CASE EVENT DATE: 201611
